FAERS Safety Report 4364550-9 (Version None)
Quarter: 2004Q2

REPORT INFORMATION
  Report Type: 
  Country: None (occurrence: None)
  Receive Date: 20040521
  Receipt Date: 20040506
  Transmission Date: 20050107
  Serious: Yes (Hospitalization)
  Sender: FDA-Public Use
  Company Number: HQWYE508619APR04

PATIENT
  Age: 46 Year
  Sex: 0

DRUGS (3)
  1. CONTROLOC (PANTOPRAZOLE, UNSPEC) [Suspect]
     Dates: start: 20040315
  2. SULFASALAZINE [Concomitant]
  3. METHYLPREDNISOLONE [Concomitant]

REACTIONS (2)
  - CONDITION AGGRAVATED [None]
  - PANCREATITIS CHRONIC [None]
